FAERS Safety Report 24142442 (Version 2)
Quarter: 2025Q3

REPORT INFORMATION
  Report Type: Report from Study
  Country: CA (occurrence: CA)
  Receive Date: 20240726
  Receipt Date: 20250919
  Transmission Date: 20251020
  Serious: Yes (Other)
  Sender: TEVA
  Company Number: CA-TEVA-VS-3225060

PATIENT
  Age: 74 Year
  Sex: Female

DRUGS (5)
  1. OCTREOTIDE [Suspect]
     Active Substance: OCTREOTIDE
     Indication: Carcinoid tumour
     Route: 030
     Dates: start: 20220308, end: 20240628
  2. OCTREOTIDE [Suspect]
     Active Substance: OCTREOTIDE
     Indication: Carcinoid tumour
     Route: 030
     Dates: start: 20240716
  3. OCTREOTIDE [Suspect]
     Active Substance: OCTREOTIDE
     Indication: Carcinoid tumour
     Dosage: LAST ADMIN DATE: 2025-08-18
     Route: 058
  4. TYLENOL [Suspect]
     Active Substance: ACETAMINOPHEN
     Indication: Product used for unknown indication
     Route: 065
  5. CYMBALTA [Suspect]
     Active Substance: DULOXETINE HYDROCHLORIDE
     Indication: Product used for unknown indication
     Route: 065

REACTIONS (10)
  - Breast cancer [Unknown]
  - Weight decreased [Unknown]
  - SARS-CoV-2 test positive [Recovered/Resolved]
  - Muscle rupture [Unknown]
  - Rhinorrhoea [Unknown]
  - Fall [Unknown]
  - Alopecia [Unknown]
  - Constipation [Recovering/Resolving]
  - Diarrhoea [Unknown]
  - Monoparesis [Unknown]

NARRATIVE: CASE EVENT DATE: 20240629
